FAERS Safety Report 10150220 (Version 2)
Quarter: 2014Q2

REPORT INFORMATION
  Report Type: Spontaneous
  Country: FR (occurrence: FR)
  Receive Date: 20140502
  Receipt Date: 20140502
  Transmission Date: 20141212
  Serious: Yes (Life-Threatening, Hospitalization, Other)
  Sender: FDA-Public Use
  Company Number: FR-ASTRAZENECA-2014SE28989

PATIENT
  Age: 17120 Day
  Sex: Male

DRUGS (4)
  1. BRILIQUE [Suspect]
     Indication: ACUTE CORONARY SYNDROME
     Route: 048
     Dates: start: 201301, end: 20140408
  2. TAHOR [Concomitant]
  3. CARDENSIEL [Concomitant]
  4. KARDEGIC [Concomitant]

REACTIONS (3)
  - Thrombosis in device [Recovered/Resolved]
  - Acute myocardial infarction [Recovered/Resolved]
  - Therapy cessation [Unknown]
